FAERS Safety Report 5462980-5 (Version None)
Quarter: 2007Q3

REPORT INFORMATION
  Report Type: 
  Country: None (occurrence: None)
  Receive Date: 20070918
  Receipt Date: 20070918
  Transmission Date: 20080115
  Serious: Yes (Hospitalization)
  Sender: FDA-Public Use
  Company Number: None

PATIENT
  Sex: Female
  Weight: 150.6 kg

DRUGS (3)
  1. DECADRON [Suspect]
     Dosage: 4MG TABLETS, INSTRUCTED TO TAKE 5 TABLETS EVENING PRIOR TO CHEMO AND MORNING OF TAXOL DEXAMETHASONE
  2. TAXOL [Concomitant]
  3. DEXAMETHASONE 0.5MG TAB [Concomitant]

REACTIONS (3)
  - HEADACHE [None]
  - HYPERGLYCAEMIA [None]
  - POLYURIA [None]
